FAERS Safety Report 7072278-X (Version None)
Quarter: 2010Q4

REPORT INFORMATION
  Report Type: 
  Country: None (occurrence: None)
  Receive Date: 20101029
  Receipt Date: 20091230
  Transmission Date: 20110411
  Serious: No
  Sender: FDA-Public Use
  Company Number: A0837254A

PATIENT
  Age: 84 Year
  Sex: Male

DRUGS (12)
  1. ADVAIR DISKUS 100/50 [Suspect]
     Indication: ASTHMA
     Route: 055
     Dates: start: 20091210
  2. ALBUTEROL [Concomitant]
  3. NEBULIZER [Concomitant]
  4. FUROSEMIDE [Concomitant]
  5. METOPROLOL [Concomitant]
  6. DIGOXIN [Concomitant]
  7. AMIODARONE HCL [Concomitant]
  8. LISINOPRIL [Concomitant]
  9. WARFARIN SODIUM [Concomitant]
  10. KLOR-CON [Concomitant]
  11. IRON [Concomitant]
  12. LEVOTHYROXINE [Concomitant]

REACTIONS (4)
  - OEDEMA MOUTH [None]
  - OROPHARYNGEAL PAIN [None]
  - SWELLING FACE [None]
  - SWOLLEN TONGUE [None]
